FAERS Safety Report 24385125 (Version 2)
Quarter: 2024Q4

REPORT INFORMATION
  Report Type: Spontaneous
  Country: JP (occurrence: JP)
  Receive Date: 20241001
  Receipt Date: 20241110
  Transmission Date: 20250114
  Serious: Yes (Other)
  Sender: UCB
  Company Number: JP-UCBJ-CD202408862UCBPHAPROD

PATIENT
  Age: 9 Decade
  Sex: Male

DRUGS (3)
  1. LEVETIRACETAM [Suspect]
     Active Substance: LEVETIRACETAM
     Indication: Epilepsy
     Dosage: 1000 MILLIGRAM
     Route: 048
  2. LEVETIRACETAM [Suspect]
     Active Substance: LEVETIRACETAM
     Dosage: 1500 MILLIGRAM
     Route: 048
  3. VALPROATE SODIUM [Suspect]
     Active Substance: VALPROATE SODIUM
     Indication: Generalised tonic-clonic seizure
     Dosage: 400 MILLIGRAM
     Route: 048

REACTIONS (2)
  - Tonic convulsion [Recovered/Resolved]
  - Off label use [Unknown]
